FAERS Safety Report 7897967-6 (Version None)
Quarter: 2011Q4

REPORT INFORMATION
  Report Type: 
  Country: None (occurrence: None)
  Receive Date: 20111028
  Receipt Date: 20110620
  Transmission Date: 20120403
  Serious: Yes (Other)
  Sender: FDA-Public Use
  Company Number: PHHY2011US54711

PATIENT

DRUGS (1)
  1. LESCOL XL [Suspect]

REACTIONS (1)
  - THROMBOCYTOPENIA [None]
